FAERS Safety Report 20155586 (Version 1)
Quarter: 2021Q4

REPORT INFORMATION
  Report Type: Spontaneous
  Country: US (occurrence: None)
  Receive Date: 20211206
  Receipt Date: 20211206
  Transmission Date: 20220303
  Serious: Yes (Disabling, Other)
  Sender: FDA-Public Use
  Company Number: None

PATIENT
  Age: 63 Year
  Sex: Female
  Weight: 165.5 kg

DRUGS (1)
  1. CASIRIVIMAB\IMDEVIMAB [Suspect]
     Active Substance: CASIRIVIMAB\IMDEVIMAB
     Indication: COVID-19 pneumonia
     Dosage: OTHER FREQUENCY : ONCE;?
     Route: 040
     Dates: start: 20211025, end: 20211025

REACTIONS (4)
  - Arthralgia [None]
  - Back pain [None]
  - Blood pressure abnormal [None]
  - Feeling abnormal [None]

NARRATIVE: CASE EVENT DATE: 20211025
